FAERS Safety Report 15547081 (Version 2)
Quarter: 2018Q4

REPORT INFORMATION
  Report Type: Spontaneous
  Country: US (occurrence: US)
  Receive Date: 20181024
  Receipt Date: 20181121
  Transmission Date: 20190205
  Serious: No
  Sender: FDA-Public Use
  Company Number: US-FRESENIUS MEDICAL CARE RENAL THERAPIES GROUP-FMC-1810-001877

PATIENT
  Sex: Female

DRUGS (1)
  1. DELFLEX [Suspect]
     Active Substance: CALCIUM CHLORIDE\DEXTROSE\MAGNESIUM CHLORIDE\SODIUM CHLORIDE\SODIUM LACTATE
     Indication: END STAGE RENAL DISEASE
     Dosage: TREATMENT REGIMEN INCLUDES FOR EXCHANGES OF 2000ML.
     Route: 033

REACTIONS (5)
  - Diarrhoea [Recovered/Resolved]
  - Fluid imbalance [Recovering/Resolving]
  - Device malfunction [Recovered/Resolved]
  - Blood pressure increased [Recovering/Resolving]
  - Constipation [Unknown]
